FAERS Safety Report 19687107 (Version 1)
Quarter: 2021Q3

REPORT INFORMATION
  Report Type: Report from Study
  Country: None (occurrence: IT)
  Receive Date: 20210811
  Receipt Date: 20210811
  Transmission Date: 20211014
  Serious: Yes (Hospitalization)
  Sender: FDA-Public Use
  Company Number: IT-ABBVIE-21K-083-4031566-00

PATIENT
  Age: 16 Year
  Sex: Male
  Weight: 28 kg

DRUGS (4)
  1. HUMIRA [Suspect]
     Active Substance: ADALIMUMAB
     Indication: CROHN^S DISEASE
     Route: 058
     Dates: start: 20170927, end: 201911
  2. FLIXABI [Concomitant]
     Active Substance: INFLIXIMAB
     Indication: THERAPEUTIC PRODUCT EFFECT DECREASED
     Route: 042
     Dates: start: 20191219
  3. FLIXABI [Concomitant]
     Active Substance: INFLIXIMAB
     Indication: GROWTH RETARDATION
  4. FLIXABI [Concomitant]
     Active Substance: INFLIXIMAB
     Indication: THERAPEUTIC PRODUCT EFFECT DECREASED

REACTIONS (1)
  - Anal fistula [Recovered/Resolved]

NARRATIVE: CASE EVENT DATE: 20210610
